FAERS Safety Report 11799720 (Version 1)
Quarter: 2015Q4

REPORT INFORMATION
  Report Type: Spontaneous
  Country: JP (occurrence: JP)
  Receive Date: 20151203
  Receipt Date: 20151203
  Transmission Date: 20160305
  Serious: Yes (Hospitalization)
  Sender: FDA-Public Use
  Company Number: PHJP2015JP021282

PATIENT
  Age: 89 Year
  Sex: Female

DRUGS (2)
  1. EXELON PATCH [Suspect]
     Active Substance: RIVASTIGMINE
     Dosage: EXELON PATCH WAS INCREASED
     Route: 062
  2. EXELON PATCH [Suspect]
     Active Substance: RIVASTIGMINE
     Indication: DEMENTIA WITH LEWY BODIES
     Dosage: 4.6 MG/24 HOURS (09 MG DAILY RIVASTIGMINE BASE PATCH 5 CM2)
     Route: 062

REACTIONS (8)
  - Product use issue [Unknown]
  - Unresponsive to stimuli [Unknown]
  - Dehydration [Unknown]
  - Weight decreased [Unknown]
  - Bradycardia [Unknown]
  - Muscular weakness [Unknown]
  - Feeding disorder [Unknown]
  - Somnolence [Unknown]

NARRATIVE: CASE EVENT DATE: 20151127
